FAERS Safety Report 5289901-2 (Version None)
Quarter: 2007Q1

REPORT INFORMATION
  Report Type: 
  Country: None (occurrence: None)
  Receive Date: 20070116
  Receipt Date: 20060123
  Transmission Date: 20070707
  Serious: Yes (Other)
  Sender: FDA-Public Use
  Company Number: HQWYE085513AUG03

PATIENT
  Age: 61 Year
  Sex: Female
  Weight: 58.11 kg

DRUGS (5)
  1. PREMPRO [Suspect]
     Indication: MENOPAUSAL SYMPTOMS
     Dosage: ORAL
     Route: 048
     Dates: start: 20000501, end: 20020101
  2. ESTRACE [Suspect]
  3. MEDROXYPROGESTERONE [Suspect]
  4. PREMARIN [Suspect]
     Dosage: ORAL
     Route: 048
     Dates: start: 19970101, end: 20000101
  5. PROVERA [Suspect]
     Dates: start: 19970101, end: 20000101

REACTIONS (1)
  - BREAST CANCER [None]
